FAERS Safety Report 8124387-1 (Version None)
Quarter: 2012Q1

REPORT INFORMATION
  Report Type: 
  Country: None (occurrence: None)
  Receive Date: 20120209
  Receipt Date: 20120201
  Transmission Date: 20120608
  Serious: Yes (Other)
  Sender: FDA-Public Use
  Company Number: CA-JNJFOC-20120202742

PATIENT
  Sex: Female
  Weight: 68 kg

DRUGS (22)
  1. LIPITOR [Concomitant]
     Route: 065
  2. ALTACE [Concomitant]
     Route: 065
  3. VITAMIN D [Concomitant]
     Route: 065
  4. IMODIUM [Concomitant]
     Dosage: PRN
     Route: 065
  5. VITAMIN B6 [Concomitant]
     Route: 065
  6. REMICADE [Suspect]
     Indication: CROHN'S DISEASE
     Route: 042
     Dates: start: 20111221
  7. LASIX [Concomitant]
     Dosage: PRN
     Route: 065
  8. METHOTREXATE [Concomitant]
     Route: 065
  9. PANTOPRAZOLE [Concomitant]
     Route: 065
  10. PROGESTERONE [Concomitant]
     Route: 065
  11. PENTASA [Concomitant]
     Route: 065
  12. FOSAMAX [Concomitant]
     Route: 065
  13. MAGNESIUM [Concomitant]
     Route: 065
  14. PERCOCET [Concomitant]
     Route: 065
  15. PREMARIN [Concomitant]
     Route: 065
  16. GLYBURIDE [Concomitant]
     Route: 065
  17. VITAMIN B-12 [Concomitant]
     Route: 065
  18. CALCIUM [Concomitant]
     Route: 065
  19. CARVEDILOL [Concomitant]
     Route: 065
  20. ISONIAZID [Concomitant]
     Route: 065
  21. REMICADE [Suspect]
     Route: 042
     Dates: start: 20120104
  22. METFORMIN HCL [Concomitant]
     Route: 065

REACTIONS (1)
  - EYE SWELLING [None]
